FAERS Safety Report 4327900-5 (Version None)
Quarter: 2004Q1

REPORT INFORMATION
  Report Type: 
  Country: None (occurrence: None)
  Receive Date: 20040325
  Receipt Date: 20040312
  Transmission Date: 20041129
  Serious: Yes (Other)
  Sender: FDA-Public Use
  Company Number: GB-JNJFOC-20040303039

PATIENT
  Age: 32 Year
  Sex: Male

DRUGS (2)
  1. RISPERDAL [Suspect]
     Indication: SCHIZOPHRENIA
     Dosage: 1 MG, IN 1 DAY, ORAL
     Route: 048
     Dates: start: 20040118, end: 20040212
  2. PAROXETINE HCL [Concomitant]

REACTIONS (1)
  - ENURESIS [None]
